FAERS Safety Report 8117532-5 (Version None)
Quarter: 2012Q1

REPORT INFORMATION
  Report Type: 
  Country: None (occurrence: None)
  Receive Date: 20120207
  Receipt Date: 20120125
  Transmission Date: 20120608
  Serious: No
  Sender: FDA-Public Use
  Company Number: US-BIOGENIDEC-2012BI003043

PATIENT
  Sex: Male

DRUGS (1)
  1. TYSABRI [Suspect]
     Indication: MULTIPLE SCLEROSIS
     Route: 042
     Dates: start: 20110106

REACTIONS (5)
  - MUSCLE FATIGUE [None]
  - DRUG INEFFECTIVE [None]
  - MUSCLE SPASTICITY [None]
  - OEDEMA PERIPHERAL [None]
  - DYSKINESIA [None]
